FAERS Safety Report 9608086 (Version 1)
Quarter: 2013Q4

REPORT INFORMATION
  Report Type: Spontaneous
  Country: US (occurrence: None)
  Receive Date: 20131007
  Receipt Date: 20131007
  Transmission Date: 20140711
  Serious: Yes (Death)
  Sender: FDA-Public Use
  Company Number: None

PATIENT
  Age: 63 Year
  Sex: Male
  Weight: 88.4 kg

DRUGS (1)
  1. WARFARIN [Suspect]

REACTIONS (4)
  - Fall [None]
  - Subdural haematoma [None]
  - Brain death [None]
  - Unevaluable event [None]
